FAERS Safety Report 7545856-9 (Version None)
Quarter: 2011Q2

REPORT INFORMATION
  Report Type: 
  Country: None (occurrence: None)
  Receive Date: 20110613
  Receipt Date: 20110613
  Transmission Date: 20111010
  Serious: Yes (Other)
  Sender: FDA-Public Use
  Company Number: None

PATIENT
  Age: 63 Year
  Sex: Female
  Weight: 74.8435 kg

DRUGS (1)
  1. BISOPROLOL FUMARATE AND HYDROCHLOROTHIAZIDE [Suspect]
     Indication: HYPERTENSION
     Dosage: 5/6.25 MG DAILY PO
     Route: 048
     Dates: start: 20110101, end: 20110227

REACTIONS (3)
  - RASH [None]
  - URTICARIA [None]
  - PRODUCT SUBSTITUTION ISSUE [None]
